FAERS Safety Report 19282922 (Version 1)
Quarter: 2021Q2

REPORT INFORMATION
  Report Type: Spontaneous
  Country: US (occurrence: US)
  Receive Date: 20210520
  Receipt Date: 20210520
  Transmission Date: 20210717
  Serious: Yes (Other)
  Sender: FDA-Public Use
  Company Number: None

PATIENT
  Age: 33 Year
  Sex: Female
  Weight: 94.5 kg

DRUGS (1)
  1. NP THYROID [Suspect]
     Active Substance: LEVOTHYROXINE\LIOTHYRONINE
     Indication: HYPOTHYROIDISM
     Dosage: ?          QUANTITY:1 TABLET(S);?
     Route: 048
     Dates: start: 20210501, end: 20210518

REACTIONS (6)
  - Lethargy [None]
  - Mood altered [None]
  - Fatigue [None]
  - Alopecia [None]
  - Behaviour disorder [None]
  - Recalled product [None]

NARRATIVE: CASE EVENT DATE: 20210509
